FAERS Safety Report 7743506-X (Version None)
Quarter: 2011Q3

REPORT INFORMATION
  Report Type: 
  Country: None (occurrence: None)
  Receive Date: 20110912
  Receipt Date: 20110907
  Transmission Date: 20111222
  Serious: Yes (Hospitalization)
  Sender: FDA-Public Use
  Company Number: JP-ABBOTT-11P-087-0840328-00

PATIENT
  Sex: Male

DRUGS (4)
  1. CLARITHROMYCIN [Suspect]
     Indication: SINUSITIS
     Route: 048
     Dates: start: 20110611, end: 20110715
  2. MUCODYNE [Concomitant]
     Indication: PRODUCT USED FOR UNKNOWN INDICATION
     Route: 048
     Dates: start: 20110611, end: 20110715
  3. LENDORMIN [Concomitant]
     Indication: PRODUCT USED FOR UNKNOWN INDICATION
     Route: 048
  4. UNKNOWN NASAL SPRAY [Concomitant]
     Indication: PRODUCT USED FOR UNKNOWN INDICATION
     Route: 045

REACTIONS (1)
  - HENOCH-SCHONLEIN PURPURA [None]
